FAERS Safety Report 4433831-2 (Version None)
Quarter: 2004Q3

REPORT INFORMATION
  Report Type: 
  Country: None (occurrence: None)
  Receive Date: 20040825
  Receipt Date: 20040825
  Transmission Date: 20050211
  Serious: Yes (Other)
  Sender: FDA-Public Use
  Company Number: None

PATIENT
  Age: 59 Year
  Sex: Male
  Weight: 110.9 kg

DRUGS (21)
  1. ATORVASTATIN CALCIUM [Suspect]
  2. ACARBROSE [Concomitant]
  3. GEMFIBROZIL [Concomitant]
  4. CYCLOBENZAPRINE HCL [Concomitant]
  5. ASCORBIC ACID [Concomitant]
  6. CLOPIDOGREL BISULFATE [Concomitant]
  7. DILTIAZEM (INWOOD/TIAZAC) [Concomitant]
  8. HYDROCHLOROTHIAZIDE [Concomitant]
  9. FOSINOPRIL NA [Concomitant]
  10. FUROSEMIDE [Concomitant]
  11. POTASSIUM CHLORIDE [Concomitant]
  12. INSULIN NPH HUMAN NOVOLON N [Concomitant]
  13. INSULIN REG HUMAN NOVOLN R [Concomitant]
  14. METOPROLOL TARTRATE [Concomitant]
  15. VITAMIN E [Concomitant]
  16. GLUCOSE [Concomitant]
  17. ATORVASTATIN CALCIUM [Concomitant]
  18. OMEPRAZOLE [Concomitant]
  19. SILDENAFIL CITRATE [Concomitant]
  20. FLUOCINONIDE [Concomitant]
  21. ABSORBASE [Concomitant]

REACTIONS (1)
  - BLOOD CREATINE PHOSPHOKINASE INCREASED [None]
